FAERS Safety Report 6896687-4 (Version None)
Quarter: 2010Q3

REPORT INFORMATION
  Report Type: 
  Country: None (occurrence: None)
  Receive Date: 20100802
  Receipt Date: 20070221
  Transmission Date: 20110219
  Serious: No
  Sender: FDA-Public Use
  Company Number: US-PFIZER INC-2006018463

PATIENT
  Sex: Female
  Weight: 118.84 kg

DRUGS (12)
  1. LYRICA [Suspect]
     Indication: NEUROPATHY PERIPHERAL
     Route: 048
     Dates: start: 20060202
  2. LYRICA [Suspect]
  3. INSULIN [Concomitant]
  4. IMDUR [Concomitant]
  5. BETAPACE [Concomitant]
  6. WARFARIN SODIUM [Concomitant]
  7. VALSARTAN [Concomitant]
     Indication: HYPERTENSION
  8. DEMADEX [Concomitant]
  9. EMETROL (US) [Concomitant]
  10. ALL OTHER THERAPEUTIC PRODUCTS [Concomitant]
  11. TOPROL-XL [Concomitant]
  12. COLACE [Concomitant]

REACTIONS (10)
  - ACTIVITIES OF DAILY LIVING IMPAIRED [None]
  - BALANCE DISORDER [None]
  - COAGULOPATHY [None]
  - DRUG INEFFECTIVE [None]
  - FATIGUE [None]
  - HYPERSOMNIA [None]
  - SLEEP DISORDER [None]
  - SOMNOLENCE [None]
  - VISUAL BRIGHTNESS [None]
  - VISUAL IMPAIRMENT [None]
